FAERS Safety Report 4392805-0 (Version None)
Quarter: 2004Q3

REPORT INFORMATION
  Report Type: 
  Country: None (occurrence: None)
  Receive Date: 20040702
  Receipt Date: 20040622
  Transmission Date: 20050211
  Serious: Yes (Hospitalization)
  Sender: FDA-Public Use
  Company Number: 04P-013-0259331-00

PATIENT
  Age: 32 Year
  Sex: Male
  Weight: 60.5 kg

DRUGS (5)
  1. KALETRA [Suspect]
     Indication: HIV INFECTION
     Dosage: 300 MG, 2 IN 1 D, PER ORAL
     Route: 048
     Dates: start: 20031114
  2. ABACAVIR [Concomitant]
  3. LAMIVUDINE [Concomitant]
  4. ACYCLOVIR [Concomitant]
  5. PENTHMIDINE [Concomitant]

REACTIONS (3)
  - CONSTIPATION [None]
  - NEUROSYPHILIS [None]
  - RECTAL HAEMORRHAGE [None]
